FAERS Safety Report 8929327 (Version 1)
Quarter: 2012Q4

REPORT INFORMATION
  Report Type: Spontaneous
  Country: US (occurrence: None)
  Receive Date: 20121126
  Receipt Date: 20121126
  Transmission Date: 20130627
  Serious: Yes (Disabling, Other)
  Sender: FDA-Public Use
  Company Number: None

PATIENT
  Sex: Female
  Weight: 64.41 kg

DRUGS (2)
  1. LEVOTHYROXINE SODIUM [Suspect]
     Indication: THYROID DISORDER
     Dosage: 1 tablet daily orally
     Route: 048
     Dates: start: 20060916
  2. LEVOTHYROXINE SODIUM [Suspect]

REACTIONS (6)
  - Tremor [None]
  - Mental disorder [None]
  - Palpitations [None]
  - Depression [None]
  - Blood calcium decreased [None]
  - Clavicle fracture [None]
